FAERS Safety Report 19384399 (Version 2)
Quarter: 2021Q3

REPORT INFORMATION
  Report Type: Spontaneous
  Country: US (occurrence: US)
  Receive Date: 20210608
  Receipt Date: 20210810
  Transmission Date: 20211014
  Serious: No
  Sender: FDA-Public Use
  Company Number: US-JNJFOC-20210610566

PATIENT
  Sex: Male

DRUGS (4)
  1. EDURANT [Suspect]
     Active Substance: RILPIVIRINE HYDROCHLORIDE
     Indication: PRODUCT USED FOR UNKNOWN INDICATION
     Dosage: UNK
     Route: 048
     Dates: start: 202103
  2. RILPIVIRINE [Suspect]
     Active Substance: RILPIVIRINE
     Indication: PROPHYLAXIS AGAINST HIV INFECTION
     Dosage: 1 DF, Z, ONE 400 MG INJECTION OFCABOTEGRAVIR AND ONE 600 MG INJECTION OF RILPIVIRINE ONCE A MONTH
     Route: 065
     Dates: start: 202104
  3. CABOTEGRAVIR [Suspect]
     Active Substance: CABOTEGRAVIR
     Indication: PRODUCT USED FOR UNKNOWN INDICATION
     Dosage: UNK
     Route: 065
     Dates: start: 202103
  4. CABOTEGRAVIR [Suspect]
     Active Substance: CABOTEGRAVIR
     Indication: PROPHYLAXIS AGAINST HIV INFECTION
     Dosage: 1 DF, Z, ONE 400 MG INJECTION OFCABOTEGRAVIR AND ONE 600 MG INJECTION OF RILPIVIRINE ONCE A MONTH
     Route: 065
     Dates: start: 202104

REACTIONS (2)
  - Headache [Recovered/Resolved]
  - Pain [Not Recovered/Not Resolved]
